FAERS Safety Report 5031132-5 (Version None)
Quarter: 2006Q2

REPORT INFORMATION
  Report Type: 
  Country: None (occurrence: None)
  Receive Date: 20060615
  Receipt Date: 20060606
  Transmission Date: 20061013
  Serious: Yes (Death, Life-Threatening, Hospitalization, Other)
  Sender: FDA-Public Use
  Company Number: 2002-03-1310

PATIENT
  Age: 57 Year
  Sex: Male
  Weight: 76 kg

DRUGS (6)
  1. PEG-INTRON [Suspect]
     Indication: CHRONIC MYELOID LEUKAEMIA
     Dosage: 474-150MCG/W* SUBCUTANEOUS
     Route: 058
     Dates: start: 20011218, end: 20011218
  2. PEG-INTRON [Suspect]
     Indication: CHRONIC MYELOID LEUKAEMIA
     Dosage: 474-150MCG/W* SUBCUTANEOUS
     Route: 058
     Dates: start: 20011218, end: 20020312
  3. PEG-INTRON [Suspect]
     Indication: CHRONIC MYELOID LEUKAEMIA
     Dosage: 474-150MCG/W* SUBCUTANEOUS
     Route: 058
     Dates: start: 20020312, end: 20020312
  4. THEOPHYLLINE [Concomitant]
  5. ALLOPURINOL [Concomitant]
  6. OMEPRAZOLE [Concomitant]

REACTIONS (16)
  - ACINETOBACTER INFECTION [None]
  - ACUTE RESPIRATORY DISTRESS SYNDROME [None]
  - ARRHYTHMIA SUPRAVENTRICULAR [None]
  - BONE PAIN [None]
  - CHILLS [None]
  - CHRONIC OBSTRUCTIVE PULMONARY DISEASE [None]
  - INTERSTITIAL LUNG DISEASE [None]
  - LUNG INFILTRATION [None]
  - MULTI-ORGAN FAILURE [None]
  - MYALGIA [None]
  - PATHOGEN RESISTANCE [None]
  - PSEUDOMONAS INFECTION [None]
  - RENAL FAILURE [None]
  - RESPIRATORY ACIDOSIS [None]
  - RESPIRATORY FAILURE [None]
  - SEPSIS [None]
